FAERS Safety Report 7077360-9 (Version None)
Quarter: 2010Q4

REPORT INFORMATION
  Report Type: 
  Country: None (occurrence: None)
  Receive Date: 20101101
  Receipt Date: 20101024
  Transmission Date: 20110411
  Serious: Yes (Other)
  Sender: FDA-Public Use
  Company Number: US-AMGEN-USASP2010001660

PATIENT

DRUGS (3)
  1. PROCRIT [Suspect]
     Indication: RED BLOOD CELL COUNT DECREASED
     Dosage: 40000 UNIT, UNK
     Route: 058
     Dates: start: 20000101, end: 20100901
  2. NEXIUM [Concomitant]
     Dosage: 40 MG, QD
     Route: 048
  3. IBUPROFEN [Concomitant]
     Dosage: UNK UNK, PRN
     Route: 048

REACTIONS (3)
  - BLOOD CHOLESTEROL INCREASED [None]
  - DEPRESSION [None]
  - RED BLOOD CELL COUNT ABNORMAL [None]
